FAERS Safety Report 9558232 (Version 3)
Quarter: 2013Q4

REPORT INFORMATION
  Report Type: Spontaneous
  Country: IT (occurrence: IT)
  Receive Date: 20130926
  Receipt Date: 20131024
  Transmission Date: 20140711
  Serious: Yes (Life-Threatening)
  Sender: FDA-Public Use
  Company Number: IT-ELI_LILLY_AND_COMPANY-IT201309007962

PATIENT
  Age: 53 Year
  Sex: Male

DRUGS (4)
  1. EFIENT [Suspect]
     Indication: PERCUTANEOUS CORONARY INTERVENTION
     Dosage: 60 MG, SINGLE
     Route: 048
     Dates: start: 20121108, end: 20121108
  2. EFIENT [Suspect]
     Indication: ACUTE CORONARY SYNDROME
  3. ANGIOX [Suspect]
     Indication: ACUTE CORONARY SYNDROME
     Dosage: 44 ML, UNKNOWN
     Route: 042
     Dates: start: 20121108, end: 20121108
  4. VISIPAQUE [Suspect]
     Indication: ARTERIOGRAM CORONARY
     Dosage: 195 ML, UNKNOWN
     Route: 042
     Dates: start: 20121108, end: 20121108

REACTIONS (6)
  - Nasal disorder [Recovered/Resolved]
  - Rash [Recovered/Resolved]
  - Oedema [Recovered/Resolved]
  - Dyspnoea [Recovered/Resolved]
  - Flushing [Recovered/Resolved]
  - Vomiting [Unknown]
